FAERS Safety Report 9594229 (Version 1)
Quarter: 2013Q4

REPORT INFORMATION
  Report Type: Spontaneous
  Country: US (occurrence: None)
  Receive Date: 20131002
  Receipt Date: 20131002
  Transmission Date: 20140711
  Serious: Yes (Other)
  Sender: FDA-Public Use
  Company Number: SYM-2013-11129

PATIENT
  Age: 63 Year
  Sex: Male

DRUGS (1)
  1. XENAZINE (TETRABENAZINE) (12.5 MILLIGRAM, TABLET) (TETRABENAZINE) [Suspect]
     Indication: CHOREA
     Dosage: 12.5  MG, 2 IN 1, ORAL
     Route: 048
     Dates: start: 20130424

REACTIONS (3)
  - Odynophagia [None]
  - Weight decreased [None]
  - Anorectal disorder [None]
